FAERS Safety Report 8343724-6 (Version None)
Quarter: 2012Q2

REPORT INFORMATION
  Report Type: 
  Country: None (occurrence: None)
  Receive Date: 20120508
  Receipt Date: 20120508
  Transmission Date: 20120825
  Serious: Yes (Other)
  Sender: FDA-Public Use
  Company Number: None

PATIENT
  Age: 43 Year
  Sex: Female
  Weight: 135.62 kg

DRUGS (1)
  1. DEPO-PROVERA [Suspect]
     Indication: CONTRACEPTION

REACTIONS (9)
  - DECREASED APPETITE [None]
  - HOT FLUSH [None]
  - DEPRESSION [None]
  - WEIGHT DECREASED [None]
  - PARAESTHESIA [None]
  - CHILLS [None]
  - ANXIETY [None]
  - MOOD SWINGS [None]
  - INSOMNIA [None]
